FAERS Safety Report 15112259 (Version 3)
Quarter: 2018Q3

REPORT INFORMATION
  Report Type: Report from Study
  Country: RU (occurrence: RU)
  Receive Date: 20180705
  Receipt Date: 20180919
  Transmission Date: 20181010
  Serious: Yes (Hospitalization, Other)
  Sender: FDA-Public Use
  Company Number: RU-CELGENEUS-RUS-20180610281

PATIENT
  Age: 68 Year
  Sex: Female
  Weight: 83.5 kg

DRUGS (6)
  1. AG?221 [Suspect]
     Active Substance: ENASIDENIB
     Dosage: 100 MILLIGRAM
     Route: 048
     Dates: start: 20180710
  2. AG?221 [Suspect]
     Active Substance: ENASIDENIB
     Indication: ACUTE MYELOID LEUKAEMIA
     Dosage: 100 MILLIGRAM
     Route: 048
     Dates: start: 20160706
  3. AG?221 [Suspect]
     Active Substance: ENASIDENIB
     Dosage: 150 MILLIGRAM
     Route: 048
     Dates: start: 20180605, end: 20180625
  4. NIFEDIPINE. [Concomitant]
     Active Substance: NIFEDIPINE
     Indication: HYPERTENSION
     Dosage: 20 MILLIGRAM
     Route: 065
     Dates: start: 20160825
  5. AG?221 [Suspect]
     Active Substance: ENASIDENIB
     Dosage: 100 MILLIGRAM
     Route: 048
     Dates: start: 20180313, end: 20180514
  6. AG?221 [Suspect]
     Active Substance: ENASIDENIB
     Route: 048
     Dates: start: 20180525

REACTIONS (3)
  - Diabetic metabolic decompensation [Recovered/Resolved]
  - Rash [Recovered/Resolved]
  - IDH differentiation syndrome [Recovered/Resolved]

NARRATIVE: CASE EVENT DATE: 20180513
